FAERS Safety Report 17655350 (Version 3)
Quarter: 2020Q4

REPORT INFORMATION
  Report Type: Spontaneous
  Country: BG (occurrence: BG)
  Receive Date: 20200410
  Receipt Date: 20201111
  Transmission Date: 20210113
  Serious: Yes (Other)
  Sender: FDA-Public Use
  Company Number: BG-PFIZER INC-2020145434

PATIENT
  Sex: Female
  Weight: 1.8 kg

DRUGS (9)
  1. METHYLPREDNISOLONE. [Suspect]
     Active Substance: METHYLPREDNISOLONE
     Indication: ARTHRALGIA
  2. METHYLPREDNISOLONE. [Suspect]
     Active Substance: METHYLPREDNISOLONE
     Indication: SYSTEMIC LUPUS ERYTHEMATOSUS
     Dosage: 40 MG, DAILY
     Route: 064
  3. METHYLPREDNISOLONE. [Suspect]
     Active Substance: METHYLPREDNISOLONE
     Indication: ANTIPHOSPHOLIPID SYNDROME
  4. IMMUNOGLOBULINUM HUMANUM [Suspect]
     Active Substance: HUMAN IMMUNOGLOBULIN G
     Dosage: UNK, MONTHLY (40 AMPOULES PER MONTH)
     Route: 064
  5. NADROPARIN CALCIUM [Suspect]
     Active Substance: NADROPARIN CALCIUM
     Dosage: 0.4 ML, DAILY
     Route: 064
  6. ACETYLSALICYLIC ACID [Suspect]
     Active Substance: ASPIRIN
     Indication: ARTHRALGIA
     Dosage: 100 MG, 1X/DAY (TABLET)
     Route: 064
  7. FRAXIPARIN [Suspect]
     Active Substance: NADROPARIN CALCIUM
     Dosage: 0.4 ML, DAILY
     Route: 064
  8. ACETYLSALICYLIC ACID [Suspect]
     Active Substance: ASPIRIN
     Indication: LIVEDO RETICULARIS
  9. METHYLPREDNISOLONE. [Suspect]
     Active Substance: METHYLPREDNISOLONE
     Indication: LIVEDO RETICULARIS

REACTIONS (4)
  - Foetal distress syndrome [Unknown]
  - Premature baby [Unknown]
  - Neonatal asphyxia [Unknown]
  - Maternal exposure during pregnancy [Unknown]
